FAERS Safety Report 5554277-X (Version None)
Quarter: 2007Q4

REPORT INFORMATION
  Report Type: 
  Country: None (occurrence: None)
  Receive Date: 20071213
  Receipt Date: 20071212
  Transmission Date: 20080405
  Serious: Yes (Other)
  Sender: FDA-Public Use
  Company Number: B0479265A

PATIENT
  Age: 50 Year
  Sex: Female

DRUGS (4)
  1. LAPATINIB [Suspect]
     Indication: BREAST CANCER
     Route: 048
     Dates: start: 20070606
  2. XELODA [Suspect]
     Indication: BREAST CANCER
     Route: 065
     Dates: start: 20070606
  3. CHEMOTHERAPY [Concomitant]
     Indication: BREAST CANCER IN SITU
     Route: 065
  4. RADIOTHERAPY [Concomitant]
     Indication: BREAST CANCER IN SITU
     Route: 065

REACTIONS (14)
  - ALANINE AMINOTRANSFERASE INCREASED [None]
  - ARTHRALGIA [None]
  - ASPARTATE AMINOTRANSFERASE INCREASED [None]
  - BILIRUBIN CONJUGATED INCREASED [None]
  - BLOOD BILIRUBIN INCREASED [None]
  - BONE DISORDER [None]
  - CARBOHYDRATE ANTIGEN 15-3 INCREASED [None]
  - CARCINOEMBRYONIC ANTIGEN INCREASED [None]
  - DIARRHOEA [None]
  - DISEASE PROGRESSION [None]
  - JAUNDICE [None]
  - MALIGNANT NEOPLASM PROGRESSION [None]
  - METASTASES TO LUNG [None]
  - PALMAR-PLANTAR ERYTHRODYSAESTHESIA SYNDROME [None]
